FAERS Safety Report 24104592 (Version 2)
Quarter: 2024Q3

REPORT INFORMATION
  Report Type: Spontaneous
  Country: CN (occurrence: CN)
  Receive Date: 20240717
  Receipt Date: 20240722
  Transmission Date: 20241016
  Serious: Yes (Hospitalization)
  Sender: PFIZER
  Company Number: CN-MLMSERVICE-20240704-PI124001-00098-1

PATIENT
  Age: 68 Year
  Sex: Male

DRUGS (10)
  1. MINOCYCLINE [Suspect]
     Active Substance: MINOCYCLINE HYDROCHLORIDE
     Indication: Anti-infective therapy
     Dosage: 100 MG Q12H
     Route: 048
     Dates: start: 202206, end: 202206
  2. MINOCYCLINE [Suspect]
     Active Substance: MINOCYCLINE HYDROCHLORIDE
     Indication: Acinetobacter infection
  3. TIGECYCLINE [Suspect]
     Active Substance: TIGECYCLINE
     Indication: Anti-infective therapy
     Dosage: 50 MG Q12H
     Route: 042
     Dates: start: 202206, end: 202206
  4. TIGECYCLINE [Suspect]
     Active Substance: TIGECYCLINE
     Indication: Acinetobacter infection
  5. IMIPENEM AND CILASTATIN [Suspect]
     Active Substance: CILASTATIN SODIUM\IMIPENEM
     Indication: Anti-infective therapy
     Dosage: 0.5 G Q8H
     Route: 042
     Dates: start: 202206
  6. IMIPENEM AND CILASTATIN [Suspect]
     Active Substance: CILASTATIN SODIUM\IMIPENEM
     Dosage: 0.5 G Q8H
     Route: 042
     Dates: start: 202206
  7. IMIPENEM AND CILASTATIN [Suspect]
     Active Substance: CILASTATIN SODIUM\IMIPENEM
     Dosage: 0.5 G Q8H
     Route: 042
     Dates: start: 202206, end: 202206
  8. TORIPALIMAB [Concomitant]
     Active Substance: TORIPALIMAB
     Indication: Lung squamous cell carcinoma stage III
     Dosage: 200 MG, CYCLIC (EVERY 21 DAYS)
  9. LINEZOLID [Concomitant]
     Active Substance: LINEZOLID
     Indication: Anti-infective therapy
     Dosage: 0.6 G Q12H
     Route: 042
     Dates: start: 202206
  10. LINEZOLID [Concomitant]
     Active Substance: LINEZOLID
     Indication: Staphylococcal infection
     Dosage: 0.6 G, 2X/DAY (INFUSION)
     Route: 042
     Dates: start: 202206

REACTIONS (4)
  - Urticaria [Unknown]
  - Dyspnoea [Unknown]
  - Drug hypersensitivity [Unknown]
  - Off label use [Unknown]

NARRATIVE: CASE EVENT DATE: 20220601
